FAERS Safety Report 7751440-4 (Version None)
Quarter: 2011Q3

REPORT INFORMATION
  Report Type: 
  Country: None (occurrence: None)
  Receive Date: 20110914
  Receipt Date: 20110901
  Transmission Date: 20111222
  Serious: Yes (Other)
  Sender: FDA-Public Use
  Company Number: PHEH2011US03240

PATIENT
  Sex: Female

DRUGS (2)
  1. DIOVAN [Suspect]
  2. DIOVAN HCT [Suspect]
     Indication: HYPERTENSION

REACTIONS (1)
  - AURICULAR SWELLING [None]
